FAERS Safety Report 11289147 (Version 4)
Quarter: 2016Q1

REPORT INFORMATION
  Report Type: Report from Study
  Country: HK (occurrence: HK)
  Receive Date: 20150721
  Receipt Date: 20160128
  Transmission Date: 20160525
  Serious: Yes (Death, Hospitalization)
  Sender: FDA-Public Use
  Company Number: HK-EISAI MEDICAL RESEARCH-EC-2015-008595

PATIENT
  Age: 72 Year
  Sex: Male
  Weight: 88.7 kg

DRUGS (3)
  1. LENVATINIB [Suspect]
     Active Substance: LENVATINIB
     Indication: HEPATOCELLULAR CARCINOMA
     Route: 048
     Dates: start: 20141119, end: 20150127
  2. ENTECAVIR. [Concomitant]
     Active Substance: ENTECAVIR
  3. LENVATINIB [Suspect]
     Active Substance: LENVATINIB
     Route: 048
     Dates: start: 20150128, end: 20150714

REACTIONS (2)
  - Respiratory failure [Fatal]
  - Pulmonary embolism [Recovered/Resolved with Sequelae]

NARRATIVE: CASE EVENT DATE: 20150715
